FAERS Safety Report 8607906 (Version 2)
Quarter: 2013Q4

REPORT INFORMATION
  Report Type: Spontaneous
  Country: US (occurrence: US)
  Receive Date: 20120611
  Receipt Date: 20131011
  Transmission Date: 20140711
  Serious: Yes (Other)
  Sender: FDA-Public Use
  Company Number: US-ASTRAZENECA-2012SE35422

PATIENT
  Age: 53 Year
  Sex: Female
  Weight: 45.4 kg

DRUGS (8)
  1. NEXIUM [Suspect]
     Indication: GASTROOESOPHAGEAL REFLUX DISEASE
     Dosage: DAILY
     Route: 048
     Dates: start: 1995, end: 2010
  2. NEXIUM [Suspect]
     Indication: ABDOMINAL PAIN UPPER
     Dosage: DAILY
     Route: 048
     Dates: start: 1995, end: 2010
  3. NEXIUM [Suspect]
     Indication: ABDOMINAL DISCOMFORT
     Dosage: DAILY
     Route: 048
     Dates: start: 1995, end: 2010
  4. NEXIUM [Suspect]
     Indication: GASTROOESOPHAGEAL REFLUX DISEASE
     Route: 048
     Dates: start: 2003
  5. NEXIUM [Suspect]
     Indication: ABDOMINAL PAIN UPPER
     Route: 048
     Dates: start: 2003
  6. NEXIUM [Suspect]
     Indication: ABDOMINAL DISCOMFORT
     Route: 048
     Dates: start: 2003
  7. PAIN MEDICINE [Concomitant]
  8. HIGH BLOOD PRESSURE MEDICINE [Concomitant]

REACTIONS (5)
  - Hip fracture [Unknown]
  - Osteoporosis [Unknown]
  - Multiple fractures [Unknown]
  - Rib fracture [Unknown]
  - Arthritis [Unknown]
